FAERS Safety Report 5075410-2 (Version None)
Quarter: 2006Q3

REPORT INFORMATION
  Report Type: 
  Country: None (occurrence: None)
  Receive Date: 20060804
  Receipt Date: 20060728
  Transmission Date: 20061208
  Serious: Yes (Hospitalization)
  Sender: FDA-Public Use
  Company Number: 2006092839

PATIENT
  Sex: Female
  Weight: 80 kg

DRUGS (4)
  1. NEURONTIN [Suspect]
     Indication: POLYNEUROPATHY
     Dosage: 300 MG (1 IN 1 D), ORAL
     Route: 048
     Dates: start: 20060510, end: 20060615
  2. ESIDRIX [Concomitant]
  3. RAMIPRIL [Concomitant]
  4. ISCOVER (CLOPIDOGREL SULFATE) [Concomitant]

REACTIONS (1)
  - GASTROINTESTINAL HYPOMOTILITY [None]
